FAERS Safety Report 21718824 (Version 2)
Quarter: 2022Q4

REPORT INFORMATION
  Report Type: Spontaneous
  Country: US (occurrence: US)
  Receive Date: 20221213
  Receipt Date: 20221213
  Transmission Date: 20230113
  Serious: Yes (Other)
  Sender: FDA-Public Use
  Company Number: US-ABBVIE-4233607

PATIENT
  Sex: Male

DRUGS (1)
  1. IMBRUVICA [Suspect]
     Active Substance: IBRUTINIB
     Indication: Product used for unknown indication
     Dosage: FORM STRENGTH: 420 MILLIGRAM;?TAKE 1 TABLET BY MOUTH ONCE DAILY. TABLET SHOULD BE TAKEN WITH A GL...
     Route: 048
     Dates: end: 20220930

REACTIONS (2)
  - Cholestasis [Unknown]
  - Hepatic enzyme increased [Unknown]
